FAERS Safety Report 10018991 (Version 2)
Quarter: 2014Q2

REPORT INFORMATION
  Report Type: Spontaneous
  Country: US (occurrence: US)
  Receive Date: 20140318
  Receipt Date: 20140401
  Transmission Date: 20141212
  Serious: Yes (Other)
  Sender: FDA-Public Use
  Company Number: US-JNJFOC-20140306475

PATIENT
  Age: 43 Year
  Sex: Female
  Weight: 136.08 kg

DRUGS (17)
  1. INVOKANA [Suspect]
     Indication: DIABETES MELLITUS
     Route: 048
     Dates: start: 20130617
  2. INVOKANA [Suspect]
     Indication: DIABETES MELLITUS
     Route: 048
     Dates: start: 20130809, end: 20130826
  3. METAMUCIL [Concomitant]
  4. FLUTICASONE [Concomitant]
     Dosage: 1 SPRAY (50 MCG) EVERY DAY IN EACH NOSTRIL
     Route: 045
  5. SINGULAIR [Concomitant]
     Route: 048
  6. TRIAMCINOLONE ACETONIDE [Concomitant]
     Dosage: 0.1%, APPLY THIN FILM TO AFFECTED SKIN AREAS 2 TIMES EVERY DAY
     Route: 061
  7. NOVOLOG FLEXPEN [Concomitant]
     Dosage: INJECT AS PER INSULIN SLIDING SCALE PROTOCOL
     Route: 058
  8. SYMBICORT [Concomitant]
     Dosage: 160 MCG-4.5 MCG, 2 PUFFS 2 TIMES EVERY DAY MORNING AND EVENING
     Route: 055
  9. CHLORTHALIDONE [Concomitant]
     Route: 048
  10. COMBIVENT [Concomitant]
     Dosage: 18 MCG-103 MCG (90 MCG)/ACTUATION, 2 PUFFS 4 TIMES A DAY
     Route: 055
  11. PREVACID [Concomitant]
     Dosage: 30 MG EVERY DAY BEFORE A MEAL
     Route: 048
  12. EPIPEN [Concomitant]
     Indication: ANAPHYLACTIC REACTION
     Route: 030
  13. ALBUTEROL SULFATE [Concomitant]
     Route: 055
  14. LOSARTAN [Concomitant]
     Route: 048
  15. GLUCAGON [Concomitant]
     Indication: HYPOGLYCAEMIA
  16. NOVOLOG 70-30 [Concomitant]
     Dosage: 100 U/ML (70-30), 40 AM, 30 PM
     Route: 058
  17. ASPIRIN [Concomitant]
     Route: 048

REACTIONS (7)
  - Confusional state [Recovered/Resolved]
  - Amnesia [Recovered/Resolved]
  - Hypoaesthesia [Recovered/Resolved]
  - Muscular weakness [Recovered/Resolved]
  - Facial paresis [Recovered/Resolved]
  - Dizziness [Recovered/Resolved]
  - Drug ineffective [Unknown]
